FAERS Safety Report 5378186-4 (Version None)
Quarter: 2007Q3

REPORT INFORMATION
  Report Type: 
  Country: None (occurrence: None)
  Receive Date: 20070705
  Receipt Date: 20070626
  Transmission Date: 20080115
  Serious: Yes (Other)
  Sender: FDA-Public Use
  Company Number: US-JNJFOC-20070606429

PATIENT
  Sex: Female

DRUGS (1)
  1. LEVAQUIN [Suspect]
     Indication: DRUG USE FOR UNKNOWN INDICATION
     Route: 048

REACTIONS (7)
  - ALOPECIA [None]
  - BLOOD GLUCOSE DECREASED [None]
  - BONE PAIN [None]
  - EXOPHTHALMOS [None]
  - GAIT DISTURBANCE [None]
  - OEDEMA PERIPHERAL [None]
  - RASH [None]
